FAERS Safety Report 11603620 (Version 1)
Quarter: 2015Q4

REPORT INFORMATION
  Report Type: Spontaneous
  Country: US (occurrence: None)
  Receive Date: 20151006
  Receipt Date: 20151006
  Transmission Date: 20160304
  Serious: Yes (Hospitalization)
  Sender: FDA-Public Use
  Company Number: None

PATIENT
  Age: 58 Year
  Sex: Female
  Weight: 67 kg

DRUGS (3)
  1. CYTARABINE. [Suspect]
     Active Substance: CYTARABINE
     Dates: end: 20150914
  2. ETOPOSIDE. [Suspect]
     Active Substance: ETOPOSIDE
     Dates: end: 20150914
  3. METHOTREXATE [Suspect]
     Active Substance: METHOTREXATE
     Dates: end: 20150911

REACTIONS (4)
  - Febrile neutropenia [None]
  - Platelet count decreased [None]
  - Bacteraemia [None]
  - Device related infection [None]

NARRATIVE: CASE EVENT DATE: 20150928
